FAERS Safety Report 12690634 (Version 1)
Quarter: 2016Q3

REPORT INFORMATION
  Report Type: Other
  Country: FR (occurrence: FR)
  Receive Date: 20160826
  Receipt Date: 20160826
  Transmission Date: 20161109
  Serious: Yes (Hospitalization)
  Sender: FDA-Public Use
  Company Number: FR-VALIDUS PHARMACEUTICALS LLC-FR-2016VAL002513

PATIENT
  Age: 67 Year
  Sex: Male

DRUGS (7)
  1. IODE [Suspect]
     Active Substance: IODINE
     Indication: PRODUCT USED FOR UNKNOWN INDICATION
     Dosage: UNK
     Route: 042
     Dates: start: 20160629, end: 20160629
  2. GENTAMICIN. [Suspect]
     Active Substance: GENTAMICIN
     Indication: PRODUCT USED FOR UNKNOWN INDICATION
     Dosage: 150 MG, DAILY
     Route: 042
     Dates: start: 20160629, end: 20160630
  3. OXACILLIN [Suspect]
     Active Substance: OXACILLIN SODIUM
     Indication: PRODUCT USED FOR UNKNOWN INDICATION
     Dosage: 12 G, DAILY
     Dates: start: 20160629
  4. GADOLINIUM [Suspect]
     Active Substance: GADOLINIUM
     Indication: PRODUCT USED FOR UNKNOWN INDICATION
     Dosage: UNK
     Route: 042
     Dates: start: 20160629, end: 20160629
  5. HYDROCORTISONE. [Suspect]
     Active Substance: HYDROCORTISONE
     Indication: PRODUCT USED FOR UNKNOWN INDICATION
     Dosage: 12 G, QD
     Dates: start: 20160629
  6. FUROSEMIDE. [Suspect]
     Active Substance: FUROSEMIDE
     Indication: PRODUCT USED FOR UNKNOWN INDICATION
     Dosage: 12 G, DAILY
     Dates: start: 20160629
  7. AMOXICILLINE                       /00249602/ [Suspect]
     Active Substance: AMOXICILLIN
     Indication: PRODUCT USED FOR UNKNOWN INDICATION
     Dosage: 12 G, DAILY
     Dates: start: 20160629

REACTIONS (1)
  - Acute kidney injury [Not Recovered/Not Resolved]

NARRATIVE: CASE EVENT DATE: 20160630
